FAERS Safety Report 9882671 (Version 2)
Quarter: 2014Q3

REPORT INFORMATION
  Report Type: Spontaneous
  Country: CA (occurrence: CA)
  Receive Date: 20140207
  Receipt Date: 20140919
  Transmission Date: 20150326
  Serious: Yes (Hospitalization, Other)
  Sender: FDA-Public Use
  Company Number: CA-ABBVIE-14P-028-1199210-00

PATIENT
  Age: 45 Year
  Sex: Female
  Weight: 62 kg

DRUGS (5)
  1. RIFAMPIN. [Concomitant]
     Active Substance: RIFAMPIN
     Indication: PRODUCT USED FOR UNKNOWN INDICATION
     Route: 048
     Dates: start: 20071119
  2. LIPIDIL EZ [Suspect]
     Active Substance: FENOFIBRATE
     Dates: start: 20130626, end: 20140113
  3. NADOLOL. [Concomitant]
     Active Substance: NADOLOL
     Indication: PRODUCT USED FOR UNKNOWN INDICATION
     Route: 048
     Dates: start: 20110117
  4. URSODEOXYCHOLIC ACID [Concomitant]
     Active Substance: URSODIOL
     Indication: PRODUCT USED FOR UNKNOWN INDICATION
     Dates: start: 20061013
  5. LIPIDIL EZ [Suspect]
     Active Substance: FENOFIBRATE
     Indication: BILIARY CIRRHOSIS PRIMARY
     Dates: start: 20090926, end: 20100113

REACTIONS (3)
  - Blood bilirubin increased [Recovered/Resolved]
  - Bleeding varicose vein [Recovered/Resolved]
  - Hepatic failure [Recovered/Resolved]
